FAERS Safety Report 22180777 (Version 3)
Quarter: 2023Q2

REPORT INFORMATION
  Report Type: Spontaneous
  Country: BR (occurrence: BR)
  Receive Date: 20230406
  Receipt Date: 20230613
  Transmission Date: 20230722
  Serious: Yes (Hospitalization, Other)
  Sender: FDA-Public Use
  Company Number: BR-GLAXOSMITHKLINE-BR2023AMR033035

PATIENT

DRUGS (2)
  1. NUCALA [Suspect]
     Active Substance: MEPOLIZUMAB
     Indication: Asthma
     Dosage: UNK
     Dates: start: 20221019
  2. NUCALA [Suspect]
     Active Substance: MEPOLIZUMAB
     Indication: Asthma
     Dosage: UNK
     Dates: start: 20230120

REACTIONS (19)
  - Lung disorder [Not Recovered/Not Resolved]
  - Dyspnoea [Recovered/Resolved]
  - Cyanosis [Not Recovered/Not Resolved]
  - Skin discolouration [Not Recovered/Not Resolved]
  - Blood pressure increased [Not Recovered/Not Resolved]
  - Hyperhidrosis [Not Recovered/Not Resolved]
  - Tremor [Not Recovered/Not Resolved]
  - Pulse abnormal [Not Recovered/Not Resolved]
  - Asthmatic crisis [Unknown]
  - Pneumonia [Unknown]
  - Asthenia [Unknown]
  - Emphysema [Unknown]
  - Body temperature fluctuation [Unknown]
  - Ultrasound kidney [Unknown]
  - Prostate examination [Unknown]
  - Inappropriate schedule of product administration [Unknown]
  - Circumstance or information capable of leading to medication error [Unknown]
  - Drug effect less than expected [Unknown]
  - Product complaint [Unknown]

NARRATIVE: CASE EVENT DATE: 20230327
